FAERS Safety Report 16431245 (Version 1)
Quarter: 2019Q2

REPORT INFORMATION
  Report Type: Spontaneous
  Country: US (occurrence: US)
  Receive Date: 20190507
  Receipt Date: 20190507
  Transmission Date: 20190711
  Serious: No
  Sender: FDA-Public Use
  Company Number: None

PATIENT
  Age: 64 Year
  Sex: Male

DRUGS (1)
  1. CYCLOPHOSPHAMIDE 500MG/M2 [Suspect]
     Active Substance: CYCLOPHOSPHAMIDE
     Indication: PROSTATE CANCER
     Dosage: TAKE ONE CAPSULE DAILY X 14 DAYS ORALLY
     Route: 048
     Dates: start: 20190411

REACTIONS (1)
  - White blood cell count decreased [None]

NARRATIVE: CASE EVENT DATE: 20190415
